FAERS Safety Report 8956485 (Version 2)
Quarter: 2013Q1

REPORT INFORMATION
  Report Type: Spontaneous
  Country: US (occurrence: US)
  Receive Date: 20121210
  Receipt Date: 20130212
  Transmission Date: 20140127
  Serious: Yes (Death)
  Sender: FDA-Public Use
  Company Number: US-GILEAD-2012-0065886

PATIENT
  Sex: Female

DRUGS (3)
  1. LETAIRIS [Suspect]
     Indication: PULMONARY HYPERTENSION
     Dosage: 10 MG, QD
     Route: 048
     Dates: start: 201208, end: 20121111
  2. LETAIRIS [Suspect]
     Indication: SYSTEMIC SCLEROSIS
  3. LETAIRIS [Suspect]
     Indication: CONNECTIVE TISSUE DISORDER

REACTIONS (5)
  - Pulmonary fibrosis [Fatal]
  - Interstitial lung disease [Fatal]
  - Respiratory failure [Fatal]
  - Pneumonia [Fatal]
  - Pulmonary hypertension [Fatal]
